FAERS Safety Report 8813420 (Version 1)
Quarter: 2012Q4

REPORT INFORMATION
  Report Type: 
  Country: US (occurrence: US)
  Receive Date: 20120927
  Receipt Date: 20120927
  Transmission Date: 20130627
  Serious: No
  Sender: FDA-Public Use
  Company Number: US-AMGEN-USASP2012048651

PATIENT
  Age: 60 Year
  Sex: Female
  Weight: 41 kg

DRUGS (4)
  1. PROLIA [Suspect]
     Indication: OSTEOPOROSIS
     Dosage: 60 mg, q6mo
     Route: 058
     Dates: start: 20120103
  2. SENOKOT [Concomitant]
     Indication: CONSTIPATION
     Dosage: UNK
     Route: 048
  3. CHONDROITIN GLUCOSAMIN [Concomitant]
     Indication: ARTHRITIS
     Dosage: UNK
     Route: 048
  4. CALCIUM [Concomitant]
     Indication: OSTEOPOROSIS
     Dosage: UNK
     Route: 048

REACTIONS (1)
  - Reflux gastritis [Recovering/Resolving]
